FAERS Safety Report 17476702 (Version 1)
Quarter: 2020Q1

REPORT INFORMATION
  Report Type: Spontaneous
  Country: GR (occurrence: GR)
  Receive Date: 20200228
  Receipt Date: 20200228
  Transmission Date: 20200409
  Serious: Yes (Hospitalization, Other)
  Sender: FDA-Public Use
  Company Number: GR-BAXTER-2020BAX004701

PATIENT
  Sex: Female

DRUGS (4)
  1. DOXIL [Suspect]
     Active Substance: DOXORUBICIN HYDROCHLORIDE
     Indication: ACUTE LYMPHOCYTIC LEUKAEMIA
     Dosage: 4 DOSES, EVERY 7 DAYS
     Route: 064
  2. DEXAMETHASONE. [Suspect]
     Active Substance: DEXAMETHASONE
     Indication: PRODUCT USED FOR UNKNOWN INDICATION
     Dosage: EVERY 7 DAYS
     Route: 064
  3. FILGRASTIM [Suspect]
     Active Substance: FILGRASTIM
     Indication: ACUTE LYMPHOCYTIC LEUKAEMIA
     Dosage: EVERY 7 DAYS
     Route: 064
  4. VINCRISTINE [Suspect]
     Active Substance: VINCRISTINE
     Indication: PRODUCT USED FOR UNKNOWN INDICATION
     Dosage: EVERY 7 DAYS
     Route: 064

REACTIONS (6)
  - Pericardial effusion [Unknown]
  - Foetal exposure during pregnancy [Unknown]
  - Right ventricular dilatation [Unknown]
  - Patent ductus arteriosus [Unknown]
  - Premature baby [Unknown]
  - Cardiac failure [Unknown]
